FAERS Safety Report 5419318-9 (Version None)
Quarter: 2007Q3

REPORT INFORMATION
  Report Type: 
  Country: None (occurrence: None)
  Receive Date: 20070820
  Receipt Date: 20070807
  Transmission Date: 20080115
  Serious: Yes (Other)
  Sender: FDA-Public Use
  Company Number: US-JNJFOC-20070801796

PATIENT
  Age: 18 Year
  Sex: Male
  Weight: 54.43 kg

DRUGS (8)
  1. TOPIRAMATE [Suspect]
  2. TOPIRAMATE [Suspect]
     Indication: WEIGHT DECREASED
  3. CLOZAPINE [Concomitant]
  4. DIVALPROEX SODIUM [Concomitant]
  5. DIVALPROEX SODIUM [Concomitant]
  6. CITALOPRAM [Concomitant]
  7. OMEPRAZOLE [Concomitant]
  8. DOXYCYCLINE [Concomitant]

REACTIONS (1)
  - HYPERTHYROIDISM [None]
